FAERS Safety Report 5011740-8 (Version None)
Quarter: 2006Q2

REPORT INFORMATION
  Report Type: 
  Country: None (occurrence: None)
  Receive Date: 20060526
  Receipt Date: 20060518
  Transmission Date: 20061013
  Serious: Yes (Hospitalization, Other)
  Sender: FDA-Public Use
  Company Number: US-JNJFOC-20060504322

PATIENT
  Sex: Male

DRUGS (21)
  1. REMICADE [Suspect]
     Route: 042
  2. REMICADE [Suspect]
     Indication: RHEUMATOID ARTHRITIS
     Route: 042
  3. XANAX [Concomitant]
  4. SENNA PLUS [Concomitant]
  5. MIRALAX [Concomitant]
  6. HUMIRA [Concomitant]
  7. METHOTREXATE [Concomitant]
  8. ANDROGEL [Concomitant]
  9. WELLBUTRIN [Concomitant]
  10. CELEXA [Concomitant]
  11. KLONOPIN [Concomitant]
  12. MULTI-VITAMIN [Concomitant]
  13. MULTI-VITAMIN [Concomitant]
  14. MULTI-VITAMIN [Concomitant]
  15. MULTI-VITAMIN [Concomitant]
  16. MULTI-VITAMIN [Concomitant]
  17. MULTI-VITAMIN [Concomitant]
  18. MULTI-VITAMIN [Concomitant]
  19. MULTI-VITAMIN [Concomitant]
  20. METHADONE HCL [Concomitant]
  21. FOLIC ACID [Concomitant]

REACTIONS (2)
  - INFECTION [None]
  - PROSTATE CANCER [None]
